FAERS Safety Report 9799651 (Version 1)
Quarter: 2014Q1

REPORT INFORMATION
  Report Type: Spontaneous
  Country: US (occurrence: US)
  Receive Date: 20140106
  Receipt Date: 20140106
  Transmission Date: 20141002
  Serious: No
  Sender: FDA-Public Use
  Company Number: US-GILEAD-2010-0032050

PATIENT
  Age: 76 Year
  Sex: Female
  Weight: 73.94 kg

DRUGS (13)
  1. LETAIRIS [Suspect]
     Indication: PULMONARY ARTERIAL HYPERTENSION
     Route: 048
     Dates: start: 20090805
  2. COREG CR [Concomitant]
  3. PROCARDIA XL [Concomitant]
  4. PLAVIX [Concomitant]
  5. LASIX [Concomitant]
  6. LISINOPRIL [Concomitant]
  7. PROCRIT [Concomitant]
  8. LIPITOR [Concomitant]
  9. OXYGEN [Concomitant]
  10. ORACEA [Concomitant]
  11. ALPRAZOLAM [Concomitant]
  12. IRON [Concomitant]
  13. CENTRUM [Concomitant]

REACTIONS (2)
  - Nasal congestion [Unknown]
  - Sinusitis [Unknown]
